FAERS Safety Report 8922985 (Version 6)
Quarter: 2013Q2

REPORT INFORMATION
  Report Type: Spontaneous
  Country: US (occurrence: US)
  Receive Date: 20121124
  Receipt Date: 20130402
  Transmission Date: 20140414
  Serious: No
  Sender: FDA-Public Use
  Company Number: US-009507513-1211USA008202

PATIENT
  Age: 18 Year
  Sex: Female
  Weight: 120.64 kg

DRUGS (1)
  1. IMPLANON [Suspect]
     Indication: CONTRACEPTION
     Dosage: UNK
     Route: 059
     Dates: start: 20080812, end: 20121228

REACTIONS (2)
  - Weight increased [Unknown]
  - Medical device complication [Unknown]
